FAERS Safety Report 5495784-8 (Version None)
Quarter: 2007Q4

REPORT INFORMATION
  Report Type: 
  Country: None (occurrence: None)
  Receive Date: 20071025
  Receipt Date: 20061020
  Transmission Date: 20080405
  Serious: No
  Sender: FDA-Public Use
  Company Number: A0624382A

PATIENT
  Age: 37 Year
  Sex: Female

DRUGS (5)
  1. ADVAIR DISKUS 100/50 [Suspect]
     Indication: BRONCHITIS
     Dosage: 1PUFF TWICE PER DAY
     Route: 055
     Dates: start: 20061020
  2. OXYCONTIN [Concomitant]
  3. HYDROCODONE [Concomitant]
  4. XANAX [Concomitant]
  5. AMBIEN [Concomitant]

REACTIONS (3)
  - ABDOMINAL PAIN UPPER [None]
  - COUGH [None]
  - PHARYNGOLARYNGEAL PAIN [None]
